FAERS Safety Report 9275792 (Version 1)
Quarter: 2013Q2

REPORT INFORMATION
  Report Type: Report from Study
  Country: CA (occurrence: CA)
  Receive Date: 20130507
  Receipt Date: 20130507
  Transmission Date: 20140414
  Serious: Yes (Other)
  Sender: FDA-Public Use
  Company Number: CA-JNJFOC-20130417267

PATIENT
  Sex: Female

DRUGS (2)
  1. REMICADE [Suspect]
     Indication: CROHN^S DISEASE
     Dosage: 3 DOSES
     Route: 042
     Dates: start: 200706
  2. PREDNISONE [Suspect]
     Indication: CROHN^S DISEASE
     Route: 065
     Dates: start: 1974

REACTIONS (4)
  - Anaemia [Unknown]
  - Asthenia [Unknown]
  - Hip arthroplasty [Unknown]
  - Fistula [Unknown]
